FAERS Safety Report 13230716 (Version 1)
Quarter: 2017Q1

REPORT INFORMATION
  Report Type: Spontaneous
  Country: US (occurrence: US)
  Receive Date: 20170214
  Receipt Date: 20170214
  Transmission Date: 20170428
  Serious: Yes (Other)
  Sender: FDA-Public Use
  Company Number: US-AMGEN-USASP2017021813

PATIENT
  Age: 78 Year
  Sex: Female

DRUGS (3)
  1. EVISTA [Concomitant]
     Active Substance: RALOXIFENE HYDROCHLORIDE
     Dosage: 60 MG, QD
  2. MOBIC [Concomitant]
     Active Substance: MELOXICAM
     Dosage: 7.5 MG, QD
  3. PROLIA [Suspect]
     Active Substance: DENOSUMAB
     Indication: OSTEOPOROSIS POSTMENOPAUSAL
     Dosage: 60 MG, UNK
     Route: 065
     Dates: start: 2011, end: 201602

REACTIONS (1)
  - Osteonecrosis [Recovering/Resolving]
